FAERS Safety Report 17486602 (Version 2)
Quarter: 2020Q1

REPORT INFORMATION
  Report Type: Report from Study
  Country: US (occurrence: US)
  Receive Date: 20200303
  Receipt Date: 20200318
  Transmission Date: 20200409
  Serious: No
  Sender: FDA-Public Use
  Company Number: NVSC2020US060395

PATIENT
  Sex: Male

DRUGS (1)
  1. ENTRESTO [Suspect]
     Active Substance: SACUBITRIL\VALSARTAN
     Indication: CARDIAC FAILURE
     Dosage: 1 DF, BID
     Route: 048
     Dates: start: 201912

REACTIONS (4)
  - Flatulence [Not Recovered/Not Resolved]
  - Arthralgia [Recovering/Resolving]
  - Inflammation [Recovering/Resolving]
  - Abdominal discomfort [Not Recovered/Not Resolved]
